FAERS Safety Report 18341175 (Version 1)
Quarter: 2020Q4

REPORT INFORMATION
  Report Type: Spontaneous
  Country: US (occurrence: US)
  Receive Date: 20201003
  Receipt Date: 20201003
  Transmission Date: 20210113
  Serious: No
  Sender: FDA-Public Use
  Company Number: US-LUPIN PHARMACEUTICALS INC.-2020-03619

PATIENT
  Age: 26 Year
  Sex: Female

DRUGS (7)
  1. CISPLATIN. [Suspect]
     Active Substance: CISPLATIN
     Indication: OVARIAN GERM CELL TERATOMA
     Dosage: FIRST CHEMOTHERAPY CYCLE : AT 30 WEEKS OF GESTATION; SECOND CYCLE BEGAN AT 33 WEEKS OF GESTATION
     Route: 065
  2. BLEOMYCIN [Suspect]
     Active Substance: BLEOMYCIN SULFATE
     Indication: OVARIAN GERM CELL TERATOMA
     Dosage: FIRST CHEMOTHERAPY CYCLE: 20 IU/M2 AT 30 WEEKS OF GESTATION; SECOND CYCLE BEGAN AT 33 WEEKS OF GESTA
     Route: 065
  3. BETAMETHASONE. [Suspect]
     Active Substance: BETAMETHASONE
     Indication: PRODUCT USED FOR UNKNOWN INDICATION
     Dosage: UNK
     Route: 065
  4. INDOMETHACIN [INDOMETACIN] [Suspect]
     Active Substance: INDOMETHACIN
     Indication: PRODUCT USED FOR UNKNOWN INDICATION
     Dosage: 50 MG WAS ADMINISTERED ONE HOUR PRIOR TO SURGERY
     Route: 065
  5. INDOMETHACIN [INDOMETACIN] [Suspect]
     Active Substance: INDOMETHACIN
     Dosage: 25 MG EVERY SIX HOURS FOR 72 H POSTOPERATIVELY
     Route: 065
  6. ENOXAPARIN [Suspect]
     Active Substance: ENOXAPARIN
     Indication: THROMBOSIS PROPHYLAXIS
     Dosage: UNK
     Route: 065
  7. ETOPOSIDE. [Suspect]
     Active Substance: ETOPOSIDE
     Indication: OVARIAN GERM CELL TERATOMA
     Dosage: FIRST CHEMOTHERAPY CYCLE : AT 30 WEEKS OF GESTATION; SECOND CYCLE BEGAN AT 33 WEEKS OF GESTATION
     Route: 065

REACTIONS (1)
  - Exposure during pregnancy [Unknown]
